FAERS Safety Report 9067213 (Version 1)
Quarter: 2013Q1

REPORT INFORMATION
  Report Type: Report from Study
  Country: US (occurrence: US)
  Receive Date: 20130201
  Receipt Date: 20130201
  Transmission Date: 20140127
  Serious: No
  Sender: FDA-Public Use
  Company Number: US-ABBOTT-12P-163-1028055-00

PATIENT
  Age: 25 Year
  Sex: Male

DRUGS (4)
  1. HUMIRA [Suspect]
     Indication: CROHN^S DISEASE
     Route: 058
     Dates: start: 20121130, end: 20121130
  2. HUMIRA [Suspect]
     Route: 058
     Dates: start: 20121212, end: 20121212
  3. HUMIRA [Suspect]
     Route: 058
  4. ANTI REJECTION MEDICATIONS [Concomitant]
     Indication: RENAL TRANSPLANT

REACTIONS (2)
  - Nausea [Not Recovered/Not Resolved]
  - Vomiting [Not Recovered/Not Resolved]
